FAERS Safety Report 8317511 (Version 3)
Quarter: 2012Q4

REPORT INFORMATION
  Report Type: 
  Country: US (occurrence: US)
  Receive Date: 20111231
  Receipt Date: 20120913
  Transmission Date: 20130627
  Serious: Yes (Death)
  Sender: FDA-Public Use
  Company Number: CHPA2011US018679

PATIENT
  Age: 84 Year
  Sex: Male

DRUGS (1)
  1. KERI ORIGINAL [Suspect]
     Indication: THERAPEUTIC SKIN CARE TOPICAL
     Dosage: Unk, Unk
     Route: 061
     Dates: start: 1970, end: 2007

REACTIONS (1)
  - Bone cancer [Fatal]
